FAERS Safety Report 8967221 (Version 1)
Quarter: 2012Q4

REPORT INFORMATION
  Report Type: 
  Country: US (occurrence: US)
  Receive Date: 20121214
  Receipt Date: 20121214
  Transmission Date: 20130627
  Serious: No
  Sender: FDA-Public Use
  Company Number: US-GLAXOSMITHKLINE-A0957724A

PATIENT
  Age: 87 Year
  Sex: Female

DRUGS (12)
  1. FLUTICASONE PROPIONATE [Suspect]
     Indication: SINUS DISORDER
     Dosage: 2PUFF Per day
     Route: 045
     Dates: start: 201010
  2. COREG [Concomitant]
  3. ZOCOR [Concomitant]
  4. BENAZEPRIL [Concomitant]
  5. WARFARIN [Concomitant]
  6. LASIX [Concomitant]
  7. ARMOUR [Concomitant]
  8. NORVASC [Concomitant]
  9. CLONIDINE HCL [Concomitant]
  10. VITAMINS [Concomitant]
  11. COMBIVENT [Concomitant]
  12. MUCINEX [Concomitant]

REACTIONS (1)
  - Epistaxis [Recovered/Resolved]
